FAERS Safety Report 24543029 (Version 1)
Quarter: 2024Q4

REPORT INFORMATION
  Report Type: Spontaneous
  Country: DE (occurrence: DE)
  Receive Date: 20241024
  Receipt Date: 20241024
  Transmission Date: 20250114
  Serious: Yes (Other)
  Sender: AUROBINDO
  Company Number: DE-ROCHE-10000097185

PATIENT
  Age: 75 Year
  Sex: Male
  Weight: 90 kg

DRUGS (4)
  1. LEUCOVORIN CALCIUM [Suspect]
     Active Substance: LEUCOVORIN CALCIUM
     Indication: Neoplasm malignant
     Dosage: 840 MILLIGRAM (2 WEEK)
     Route: 042
     Dates: start: 20240307, end: 20240814
  2. IRINOTECAN [Suspect]
     Active Substance: IRINOTECAN
     Indication: Neoplasm malignant
     Dosage: 315 MILLIGRAM [ON 29-MAY-2024 HE RECEIVED THE MOST RECENT DOSE PRIOR TO THE EVENT.]
     Route: 042
     Dates: start: 20240502, end: 20240529
  3. OXALIPLATIN [Suspect]
     Active Substance: OXALIPLATIN
     Indication: Neoplasm malignant
     Dosage: 178.5 MILLIGRAM (2 WEEK)
     Route: 042
     Dates: start: 20240307, end: 20240403
  4. FLUOROURACIL [Suspect]
     Active Substance: FLUOROURACIL
     Indication: Neoplasm malignant
     Dosage: 5040 MILLIGRAM (2 WEEK)
     Route: 042
     Dates: start: 20240502, end: 20240814

REACTIONS (1)
  - Leukopenia [Recovered/Resolved]

NARRATIVE: CASE EVENT DATE: 20240612
